FAERS Safety Report 16365798 (Version 12)
Quarter: 2022Q3

REPORT INFORMATION
  Report Type: Report from Study
  Country: GB (occurrence: GB)
  Receive Date: 20190529
  Receipt Date: 20220905
  Transmission Date: 20221026
  Serious: Yes (Death, Hospitalization, Other)
  Sender: FDA-Public Use
  Company Number: GB-CELGENE-GBR-2015115208

PATIENT

DRUGS (30)
  1. DEXAMETHASONE [Suspect]
     Active Substance: DEXAMETHASONE
     Indication: Plasma cell myeloma
     Dosage: 24 MG
     Route: 065
     Dates: start: 20130816, end: 20140131
  2. DEXAMETHASONE [Suspect]
     Active Substance: DEXAMETHASONE
     Dosage: 32 MG EVERY 28 DAYS (4 MG)
     Route: 065
     Dates: start: 20150926, end: 20151018
  3. DEXAMETHASONE [Suspect]
     Active Substance: DEXAMETHASONE
     Dosage: 32 MG EVERY 28 DAYS
     Route: 065
     Dates: start: 20151022, end: 20151102
  4. DEXAMETHASONE [Suspect]
     Active Substance: DEXAMETHASONE
     Dosage: 24 MG
     Route: 065
     Dates: start: 201502, end: 20150907
  5. DEXAMETHASONE [Suspect]
     Active Substance: DEXAMETHASONE
     Dosage: 24 MG
     Route: 065
     Dates: start: 20141022, end: 20141217
  6. DEXAMETHASONE [Suspect]
     Active Substance: DEXAMETHASONE
     Dosage: UNK
     Route: 065
     Dates: start: 20141022, end: 20141217
  7. DEXAMETHASONE [Suspect]
     Active Substance: DEXAMETHASONE
     Dosage: UNK
     Route: 065
     Dates: start: 20130816, end: 20140131
  8. DEXAMETHASONE [Suspect]
     Active Substance: DEXAMETHASONE
     Dosage: 4 MG (32 UNK)
     Route: 065
     Dates: start: 20150926, end: 20151018
  9. DEXAMETHASONE [Suspect]
     Active Substance: DEXAMETHASONE
     Dosage: 32 MG EVERY 28 DAYS
     Route: 065
     Dates: start: 20150926, end: 20151018
  10. DEXAMETHASONE [Suspect]
     Active Substance: DEXAMETHASONE
     Dosage: 256 MG EVERY 28 DAYS
     Route: 065
     Dates: start: 20150926, end: 20151018
  11. DEXAMETHASONE [Suspect]
     Active Substance: DEXAMETHASONE
     Dosage: 32 MG EVERY 28 DAYS
     Route: 065
     Dates: start: 20150926, end: 20151018
  12. DEXAMETHASONE [Suspect]
     Active Substance: DEXAMETHASONE
     Dosage: 32 MG EVERY 28 DAYS (4 MG)
     Route: 065
     Dates: start: 20150926, end: 20151018
  13. POMALYST [Suspect]
     Active Substance: POMALIDOMIDE
     Indication: Plasma cell myeloma
     Dosage: 4 MG (84 MG EVERY 28 DAYS).
     Route: 048
     Dates: start: 20150925, end: 20151015
  14. POMALYST [Suspect]
     Active Substance: POMALIDOMIDE
     Dosage: 3 MG (63 MG EVERY 21 DAYS).
     Route: 048
     Dates: start: 20151022, end: 20151102
  15. POMALYST [Suspect]
     Active Substance: POMALIDOMIDE
     Dosage: 3 MG (63 MG EVERY 28 DAYS).
     Route: 048
     Dates: start: 20151022, end: 20151102
  16. WARFARIN [Concomitant]
     Active Substance: WARFARIN
     Indication: Anticoagulant therapy
     Dosage: UNK
     Route: 065
  17. WARFARIN [Concomitant]
     Active Substance: WARFARIN
     Dosage: UNK
     Route: 065
  18. FINASTERIDE [Concomitant]
     Active Substance: FINASTERIDE
     Indication: Prostatitis
     Dosage: 5 MG
     Route: 048
     Dates: start: 20151102
  19. MOVICOL [Concomitant]
     Active Substance: POLYETHYLENE GLYCOL 3350\POTASSIUM CHLORIDE\SODIUM BICARBONATE\SODIUM CHLORIDE
     Indication: Constipation
     Dosage: UNK
     Route: 048
     Dates: start: 20151102
  20. BISOPROLOL [Concomitant]
     Active Substance: BISOPROLOL
     Indication: Drug therapy
     Dosage: 5 MG
     Route: 048
     Dates: start: 20151102
  21. ONDANSETRON [Concomitant]
     Active Substance: ONDANSETRON
     Indication: Nausea
     Dosage: 16 MG, QD
     Route: 048
     Dates: start: 20151102
  22. ONDANSETRON [Concomitant]
     Active Substance: ONDANSETRON
     Dosage: 8 MG, BID
     Route: 048
     Dates: start: 20151102
  23. CALCIUM CARBONATE\CHOLECALCIFEROL [Concomitant]
     Active Substance: CALCIUM CARBONATE\CHOLECALCIFEROL
     Indication: Osteoporosis prophylaxis
     Dosage: 1 DOSAGE FORM, QD
     Route: 048
     Dates: start: 20151102
  24. GLIMEPIRIDE [Concomitant]
     Active Substance: GLIMEPIRIDE
     Indication: Diabetes mellitus
     Dosage: 1 MG
     Route: 048
     Dates: start: 20151102
  25. COTRIMOXAZOLE [Concomitant]
     Active Substance: SULFAMETHOXAZOLE\TRIMETHOPRIM
     Indication: Infection prophylaxis
     Dosage: 960 MILLIGRAM
     Route: 048
     Dates: start: 20151102
  26. LANSOPRAZOLE [Concomitant]
     Active Substance: LANSOPRAZOLE
     Indication: Product used for unknown indication
     Dosage: 30 MG, QD
     Route: 048
  27. LANSOPRAZOLE [Concomitant]
     Active Substance: LANSOPRAZOLE
     Dosage: 30 MILLIGRAM
     Route: 048
  28. COCODAMOL [Concomitant]
     Active Substance: ACETAMINOPHEN\CODEINE PHOSPHATE
     Indication: Pain
     Dosage: 30/500
     Route: 048
     Dates: start: 20151102
  29. SIMVASTATIN [Concomitant]
     Active Substance: SIMVASTATIN
     Indication: Blood cholesterol
     Dosage: 200 MG
     Route: 048
     Dates: start: 20151102
  30. GABAPENTIN [Concomitant]
     Active Substance: GABAPENTIN
     Indication: Pain
     Dosage: 600 MG
     Route: 048
     Dates: start: 20151102

REACTIONS (8)
  - Plasma cell myeloma [Fatal]
  - Fluid retention [Fatal]
  - Anaemia [Fatal]
  - General physical health deterioration [Fatal]
  - Peripheral sensory neuropathy [Fatal]
  - Thrombocytopenia [Fatal]
  - Acute kidney injury [Fatal]
  - Neutropenia [Fatal]

NARRATIVE: CASE EVENT DATE: 20151001
